FAERS Safety Report 20181654 (Version 1)
Quarter: 2021Q4

REPORT INFORMATION
  Report Type: Spontaneous
  Country: SA (occurrence: SA)
  Receive Date: 20211214
  Receipt Date: 20211214
  Transmission Date: 20220304
  Serious: Yes (Hospitalization)
  Sender: FDA-Public Use
  Company Number: SA-ALVOGEN-2021-ALVOGEN-117921

PATIENT
  Age: 2 Year
  Sex: Male
  Weight: 13.00 kg

DRUGS (1)
  1. DAPSONE [Suspect]
     Active Substance: DAPSONE
     Indication: Product used for unknown indication

REACTIONS (4)
  - Methaemoglobinaemia [Recovered/Resolved]
  - Hypochromic anaemia [Recovered/Resolved]
  - Accidental exposure to product [Unknown]
  - Toxicity to various agents [Recovered/Resolved]
